FAERS Safety Report 17063513 (Version 1)
Quarter: 2019Q4

REPORT INFORMATION
  Report Type: Report from Study
  Country: US (occurrence: US)
  Receive Date: 20191122
  Receipt Date: 20191122
  Transmission Date: 20200122
  Serious: Yes (Hospitalization)
  Sender: FDA-Public Use
  Company Number: NVSC2019US043377

PATIENT
  Age: 53 Year
  Sex: Male

DRUGS (1)
  1. COSENTYX [Suspect]
     Active Substance: SECUKINUMAB
     Indication: PSORIATIC ARTHROPATHY
     Dosage: `UNK, QW
     Route: 058
     Dates: start: 201910

REACTIONS (4)
  - Infection [Unknown]
  - Sepsis [Unknown]
  - Scratch [Unknown]
  - Cellulitis [Unknown]

NARRATIVE: CASE EVENT DATE: 201910
